FAERS Safety Report 23119181 (Version 3)
Quarter: 2023Q4

REPORT INFORMATION
  Report Type: Spontaneous
  Country: US (occurrence: US)
  Receive Date: 20231028
  Receipt Date: 20231227
  Transmission Date: 20240110
  Serious: Yes (Other)
  Sender: FDA-Public Use
  Company Number: US-REGENERON PHARMACEUTICALS, INC.-2023-045884

PATIENT
  Sex: Female

DRUGS (2)
  1. EYLEA [Suspect]
     Active Substance: AFLIBERCEPT
     Indication: Myopic chorioretinal degeneration
     Dosage: RIGHT EYE; MONTHLY, FORMULATION: PFS UNKNOWN
     Dates: start: 20230321, end: 20230321
  2. EYLEA [Suspect]
     Active Substance: AFLIBERCEPT
     Dosage: RIGHT EYE; MONTHLY, FORMULATION: PFS UNKNOWN
     Dates: start: 202305

REACTIONS (8)
  - Optic atrophy [Unknown]
  - Eye inflammation [Unknown]
  - Eye haemorrhage [Unknown]
  - Condition aggravated [Unknown]
  - Visual impairment [Unknown]
  - Ocular hyperaemia [Unknown]
  - Vision blurred [Unknown]
  - Off label use [Not Recovered/Not Resolved]

NARRATIVE: CASE EVENT DATE: 20230301
